FAERS Safety Report 5998704-2 (Version None)
Quarter: 2008Q4

REPORT INFORMATION
  Report Type: 
  Country: None (occurrence: None)
  Receive Date: 20081213
  Receipt Date: 20080718
  Transmission Date: 20090506
  Serious: No
  Sender: FDA-Public Use
  Company Number: US-AMGEN-KDL292503

PATIENT
  Sex: Female

DRUGS (5)
  1. ENBREL [Suspect]
     Indication: ANKYLOSING SPONDYLITIS
     Route: 058
     Dates: start: 20060421
  2. LISINOPRIL [Concomitant]
  3. UNSPECIFIED MEDICATION [Concomitant]
  4. DARVOCET-N 100 [Concomitant]
  5. LEXAPRO [Concomitant]

REACTIONS (2)
  - COITAL BLEEDING [None]
  - VAGINAL HAEMORRHAGE [None]
